FAERS Safety Report 4654084-6 (Version None)
Quarter: 2005Q2

REPORT INFORMATION
  Report Type: 
  Country: None (occurrence: None)
  Receive Date: 20050404
  Receipt Date: 20041216
  Transmission Date: 20051028
  Serious: No
  Sender: FDA-Public Use
  Company Number: USA041286383

PATIENT
  Age: 89 Year
  Sex: Female
  Weight: 58 kg

DRUGS (6)
  1. CYMBALTA [Suspect]
     Indication: DEPRESSION
     Dosage: 90 MG DAY
     Dates: start: 20040901, end: 20041206
  2. DETROL [Concomitant]
  3. ACTONEL [Concomitant]
  4. TRAZODONE HCL [Concomitant]
  5. CALCIUM WITH VITAMIN D [Concomitant]
  6. XANAX (ALPRAZOLAM DUM) [Concomitant]

REACTIONS (5)
  - APATHY [None]
  - DEPRESSION [None]
  - DRUG INEFFECTIVE [None]
  - MENTAL IMPAIRMENT [None]
  - PRESCRIBED OVERDOSE [None]
